FAERS Safety Report 18997001 (Version 17)
Quarter: 2024Q3

REPORT INFORMATION
  Report Type: Report from Study
  Country: US (occurrence: US)
  Receive Date: 20210311
  Receipt Date: 20240917
  Transmission Date: 20241017
  Serious: Yes (Hospitalization, Other)
  Sender: TAKEDA
  Company Number: US-TAKEDA-US202025909

PATIENT
  Age: 62 Year
  Sex: Female

DRUGS (5)
  1. HUMAN IMMUNOGLOBULIN G\HYALURONIDASE RECOMBINANT HUMAN [Suspect]
     Active Substance: HUMAN IMMUNOGLOBULIN G\HYALURONIDASE (HUMAN RECOMBINANT)
     Indication: Immunodeficiency common variable
     Dosage: 40 GRAM, MONTHLY
     Route: 065
  2. HUMAN IMMUNOGLOBULIN G\HYALURONIDASE RECOMBINANT HUMAN [Suspect]
     Active Substance: HUMAN IMMUNOGLOBULIN G\HYALURONIDASE (HUMAN RECOMBINANT)
     Indication: Primary immunodeficiency syndrome
     Dosage: 40 GRAM, MONTHLY
     Route: 058
  3. HUMAN IMMUNOGLOBULIN G\HYALURONIDASE RECOMBINANT HUMAN [Suspect]
     Active Substance: HUMAN IMMUNOGLOBULIN G\HYALURONIDASE (HUMAN RECOMBINANT)
     Dosage: UNK UNK, MONTHLY
     Route: 058
  4. SODIUM BICARBONATE\SODIUM CHLORIDE [Suspect]
     Active Substance: SODIUM BICARBONATE\SODIUM CHLORIDE
     Indication: Product used for unknown indication
     Dosage: UNK
     Route: 065
  5. JANSSEN COVID-19 VACCINE [Suspect]
     Active Substance: AD26.COV2.S
     Indication: Product used for unknown indication
     Dosage: UNK
     Route: 065

REACTIONS (34)
  - Foot fracture [Unknown]
  - Spinal compression fracture [Unknown]
  - Deafness unilateral [Unknown]
  - COVID-19 [Not Recovered/Not Resolved]
  - Lung disorder [Unknown]
  - Pain in extremity [Unknown]
  - Pyrexia [Unknown]
  - Fall [Unknown]
  - Multiple allergies [Unknown]
  - Nasopharyngitis [Unknown]
  - Seasonal allergy [Unknown]
  - Illness [Unknown]
  - Asthma [Unknown]
  - Influenza like illness [Unknown]
  - Sinusitis [Unknown]
  - Heart rate decreased [Unknown]
  - Cardiac disorder [Unknown]
  - Upper respiratory tract infection [Unknown]
  - Sinus disorder [Unknown]
  - Musculoskeletal discomfort [Not Recovered/Not Resolved]
  - Depressed mood [Unknown]
  - Gastrointestinal disorder [Unknown]
  - Crying [Unknown]
  - Temperature intolerance [Unknown]
  - Benign neoplasm of thyroid gland [Unknown]
  - Abdominal discomfort [Unknown]
  - Insomnia [Unknown]
  - Blood pressure decreased [Unknown]
  - Lymphadenopathy [Unknown]
  - Migraine [Unknown]
  - Malaise [Unknown]
  - Diarrhoea [Unknown]
  - Fatigue [Unknown]
  - Headache [Unknown]

NARRATIVE: CASE EVENT DATE: 20211101
